FAERS Safety Report 6191092-0 (Version None)
Quarter: 2009Q2

REPORT INFORMATION
  Report Type: 
  Country: None (occurrence: None)
  Receive Date: 20090513
  Receipt Date: 20090513
  Transmission Date: 20091009
  Serious: Yes (Other)
  Sender: FDA-Public Use
  Company Number: None

PATIENT
  Sex: Male
  Weight: 18.6 kg

DRUGS (4)
  1. BANZEL [Suspect]
     Indication: LENNOX-GASTAUT SYNDROME
     Dosage: 400 MG BID PO
     Route: 048
     Dates: start: 20090302
  2. VALPROIC ACID [Concomitant]
  3. KLONOPIN [Concomitant]
  4. TOPIRAMATE [Concomitant]

REACTIONS (1)
  - RASH [None]
